FAERS Safety Report 11078840 (Version 1)
Quarter: 2015Q2

REPORT INFORMATION
  Report Type: Report from Study
  Country: US (occurrence: US)
  Receive Date: 20150430
  Receipt Date: 20150430
  Transmission Date: 20150821
  Serious: Yes (Other)
  Sender: FDA-Public Use
  Company Number: US-BAYER-2015-045001

PATIENT
  Age: 64 Year
  Sex: Male
  Weight: 68.27 kg

DRUGS (13)
  1. LORATADINE. [Concomitant]
     Active Substance: LORATADINE
     Dosage: 10 MG, UNK
  2. ALPRAZOLAM. [Concomitant]
     Active Substance: ALPRAZOLAM
  3. ATENOLOL W/HYDROCHLOROTHIAZIDE [Concomitant]
  4. ATENOLOL. [Concomitant]
     Active Substance: ATENOLOL
     Dosage: 50 MG, UNK
  5. ZESTRIL [Concomitant]
     Active Substance: LISINOPRIL
     Dosage: 30 MG, UNK
  6. ZANTAC [Concomitant]
     Active Substance: RANITIDINE HYDROCHLORIDE
     Dosage: 150 MG, UNK
  7. METFORMIN [Concomitant]
     Active Substance: METFORMIN HYDROCHLORIDE
  8. NEXAVAR [Suspect]
     Active Substance: SORAFENIB
     Indication: HEPATIC CANCER
     Dosage: 200 MG, BID
     Route: 048
     Dates: start: 20150310
  9. NEXAVAR [Suspect]
     Active Substance: SORAFENIB
     Indication: ADRENAL GLAND CANCER
     Dosage: 400 MG, BID
     Route: 048
  10. OXYCODONE [Concomitant]
     Active Substance: OXYCODONE
  11. DIPHENHYDRAMINE HYDROCHLORIDE. [Concomitant]
     Active Substance: DIPHENHYDRAMINE HYDROCHLORIDE
     Dosage: 25 MG, UNK
  12. FISH OIL [Concomitant]
     Active Substance: FISH OIL
     Dosage: 340-100
  13. ADVIL [Concomitant]
     Active Substance: IBUPROFEN

REACTIONS (4)
  - Dizziness [Unknown]
  - Abdominal pain upper [Recovering/Resolving]
  - Heart rate increased [Unknown]
  - Nausea [Recovered/Resolved]

NARRATIVE: CASE EVENT DATE: 20150310
